FAERS Safety Report 16388517 (Version 1)
Quarter: 2019Q2

REPORT INFORMATION
  Report Type: Spontaneous
  Country: US (occurrence: US)
  Receive Date: 20190604
  Receipt Date: 20190604
  Transmission Date: 20190711
  Serious: Yes (Other)
  Sender: FDA-Public Use
  Company Number: US-EPIC PHARMA LLC-2019EPC00112

PATIENT
  Age: 71 Year
  Sex: Female
  Weight: 70.3 kg

DRUGS (5)
  1. SOTALOL HYDROCHLORIDE. [Suspect]
     Active Substance: SOTALOL HYDROCHLORIDE
     Dosage: 80 MG 2X/DAY
     Route: 048
     Dates: start: 2019, end: 20190518
  2. SOTALOL HYDROCHLORIDE. [Suspect]
     Active Substance: SOTALOL HYDROCHLORIDE
     Dosage: 80 MG, 1X/DAY MORNING
     Route: 048
     Dates: start: 2019, end: 2019
  3. SOTALOL HYDROCHLORIDE. [Suspect]
     Active Substance: SOTALOL HYDROCHLORIDE
     Indication: ATRIAL FIBRILLATION
     Dosage: 80 MG, 2X/DAY
     Route: 048
     Dates: start: 20190123, end: 2019
  4. SOTALOL HYDROCHLORIDE. [Suspect]
     Active Substance: SOTALOL HYDROCHLORIDE
     Dosage: 40 MG, 1X/DAY AFTERNOON
     Route: 048
     Dates: start: 2019, end: 2019
  5. HYDROCORTISONE. [Suspect]
     Active Substance: HYDROCORTISONE
     Indication: TONGUE ULCERATION
     Dosage: UNK, 2X/DAY
     Route: 061
     Dates: start: 20190417, end: 20190509

REACTIONS (3)
  - Pain in extremity [Not Recovered/Not Resolved]
  - Thrombosis [Not Recovered/Not Resolved]
  - Tongue ulceration [Recovering/Resolving]

NARRATIVE: CASE EVENT DATE: 20190308
